FAERS Safety Report 8066381-5 (Version None)
Quarter: 2012Q1

REPORT INFORMATION
  Report Type: 
  Country: None (occurrence: None)
  Receive Date: 20120124
  Receipt Date: 20120124
  Transmission Date: 20120608
  Serious: Yes (Disabling, Other)
  Sender: FDA-Public Use
  Company Number: None

PATIENT
  Age: 60 Year
  Sex: Female
  Weight: 77.11 kg

DRUGS (4)
  1. ANASTROZOLE [Suspect]
     Indication: BREAST CANCER
     Dosage: 1.0 MG
     Route: 048
     Dates: start: 20100915, end: 20120123
  2. ANASTROZOLE [Suspect]
     Indication: PROGESTERONE RECEPTOR ASSAY POSITIVE
     Dosage: 1.0 MG
     Route: 048
     Dates: start: 20100915, end: 20120123
  3. CYMBALTA [Concomitant]
  4. CELEBREX [Concomitant]

REACTIONS (11)
  - PAIN [None]
  - BURNING SENSATION [None]
  - INFLAMMATION [None]
  - BONE PAIN [None]
  - ARTHRALGIA [None]
  - FATIGUE [None]
  - MEMORY IMPAIRMENT [None]
  - PAIN OF SKIN [None]
  - PARAESTHESIA [None]
  - MUSCULOSKELETAL STIFFNESS [None]
  - ONYCHALGIA [None]
